FAERS Safety Report 10190558 (Version 1)
Quarter: 2014Q2

REPORT INFORMATION
  Report Type: Report from Study
  Country: BR (occurrence: BR)
  Receive Date: 20140523
  Receipt Date: 20140523
  Transmission Date: 20141212
  Serious: Yes (Other)
  Sender: FDA-Public Use
  Company Number: PHHY2014BR060207

PATIENT
  Age: 71 Year
  Sex: Female
  Weight: 93 kg

DRUGS (14)
  1. XOLAIR [Suspect]
     Indication: ASTHMA
     Dosage: 1.5 DF, EVERY 15 DAYS
     Route: 058
  2. XOLAIR [Suspect]
     Dosage: 1 DF, EVERY 15 DAYS
     Route: 058
  3. INFLUENZA VIRUS VACC SEASONAL INN [Suspect]
     Indication: IMMUNISATION
  4. SERTRALINE [Suspect]
     Dosage: UNK, IN THE MORNING
  5. RIVOTRIL [Suspect]
     Indication: SLEEP DISORDER
     Dosage: UNK
  6. LEXOTAN [Suspect]
     Dosage: UNK
  7. BEROTEC [Suspect]
     Dosage: UNK
  8. AEROLIN [Suspect]
     Dosage: UNK
  9. DECADRON//DEXAMETHASONE [Suspect]
     Dosage: UNK
  10. SALBUTAMOL [Concomitant]
     Indication: ASTHMA
     Dosage: UNK, BID
  11. SPIRIVA [Concomitant]
     Indication: ASTHMA
     Dosage: UNK, BID
  12. SERETIDE [Concomitant]
     Indication: ASTHMA
     Dosage: UNK, BID
  13. CALCORT [Concomitant]
     Indication: ASTHMA
     Dosage: 6 MG, IN THE MORNING
  14. ENALAPRIL [Concomitant]
     Indication: HYPERTENSION
     Dosage: 10 MG, IN THE MORNING

REACTIONS (8)
  - Back pain [Not Recovered/Not Resolved]
  - Chest pain [Not Recovered/Not Resolved]
  - Wheezing [Recovering/Resolving]
  - Influenza [Not Recovered/Not Resolved]
  - Oral discomfort [Not Recovered/Not Resolved]
  - Rhinorrhoea [Not Recovered/Not Resolved]
  - Sneezing [Not Recovered/Not Resolved]
  - Oropharyngeal pain [Recovering/Resolving]
